FAERS Safety Report 18428866 (Version 1)
Quarter: 2020Q4

REPORT INFORMATION
  Report Type: Spontaneous
  Country: US (occurrence: US)
  Receive Date: 20201026
  Receipt Date: 20201026
  Transmission Date: 20210114
  Serious: No
  Sender: FDA-Public Use
  Company Number: US-PFIZER INC-2020411317

PATIENT
  Age: 41 Year
  Sex: Female

DRUGS (1)
  1. CYTOMEL [Suspect]
     Active Substance: LIOTHYRONINE SODIUM
     Indication: HYPOTHYROIDISM
     Dosage: 20 MG, DAILY (5MG 4 TABLET BY MOUTH DAILY)
     Route: 048

REACTIONS (2)
  - Night sweats [Unknown]
  - Palpitations [Unknown]
